FAERS Safety Report 8819235 (Version 2)
Quarter: 2012Q4

REPORT INFORMATION
  Report Type: 
  Country: CN (occurrence: CN)
  Receive Date: 20121001
  Receipt Date: 20121024
  Transmission Date: 20130627
  Serious: Yes (Hospitalization, Other)
  Sender: FDA-Public Use
  Company Number: CN-JNJFOC-20120912689

PATIENT
  Age: 1 Year
  Sex: Male

DRUGS (2)
  1. CHILDREN^S MOTRIN [Suspect]
     Route: 048
  2. CHILDREN^S MOTRIN [Suspect]
     Indication: PYREXIA
     Route: 048
     Dates: start: 20090909, end: 20090909

REACTIONS (2)
  - Angioedema [Recovered/Resolved]
  - Suspected counterfeit product [Unknown]
